FAERS Safety Report 6509375-0 (Version None)
Quarter: 2009Q4

REPORT INFORMATION
  Report Type: 
  Country: None (occurrence: None)
  Receive Date: 20091217
  Receipt Date: 20091217
  Transmission Date: 20100525
  Serious: No
  Sender: FDA-Public Use
  Company Number: None

PATIENT
  Age: 51 Year
  Sex: Female
  Weight: 89.8122 kg

DRUGS (7)
  1. COLD REMEDY RAPID MELTS [Suspect]
     Indication: NASOPHARYNGITIS
     Dosage: QID
     Dates: start: 20091123, end: 20091127
  2. CLONAZEPAM [Concomitant]
  3. LEXAPRO [Concomitant]
  4. TOPAMAX [Concomitant]
  5. LITHIUM CARBONATE [Concomitant]
  6. SIMVASTATIN [Concomitant]
  7. ROZEREM [Concomitant]

REACTIONS (1)
  - AGEUSIA [None]
